FAERS Safety Report 23930788 (Version 1)
Quarter: 2024Q2

REPORT INFORMATION
  Report Type: Spontaneous
  Country: US (occurrence: US)
  Receive Date: 20240603
  Receipt Date: 20240603
  Transmission Date: 20240716
  Serious: Yes (Other)
  Sender: FDA-Public Use
  Company Number: US-BRISTOL-MYERS SQUIBB COMPANY-2024-082314

PATIENT
  Age: 47 Year
  Sex: Female

DRUGS (1)
  1. ORENCIA [Suspect]
     Active Substance: ABATACEPT
     Indication: Systemic lupus erythematosus
     Route: 058
     Dates: start: 202312

REACTIONS (6)
  - Cough [Unknown]
  - Off label use [Unknown]
  - Systemic lupus erythematosus [Unknown]
  - Headache [Unknown]
  - Arthralgia [Unknown]
  - Pyrexia [Unknown]
